FAERS Safety Report 15578607 (Version 3)
Quarter: 2019Q1

REPORT INFORMATION
  Report Type: Report from Study
  Country: EC (occurrence: EC)
  Receive Date: 20181102
  Receipt Date: 20190117
  Transmission Date: 20190417
  Serious: Yes (Hospitalization)
  Sender: FDA-Public Use
  Company Number: PHHY2017EC178202

PATIENT
  Age: 70 Year
  Sex: Female
  Weight: 67 kg

DRUGS (2)
  1. LOSARTAN. [Concomitant]
     Active Substance: LOSARTAN
     Indication: HYPERTENSION
     Dosage: 50 MG, QD
     Route: 048
  2. TASIGNA [Suspect]
     Active Substance: NILOTINIB
     Indication: CHRONIC MYELOID LEUKAEMIA
     Dosage: 400 MG, BID
     Route: 048
     Dates: start: 20160307

REACTIONS (16)
  - Dizziness [Not Recovered/Not Resolved]
  - Fatigue [Unknown]
  - Feeling cold [Unknown]
  - Pyrexia [Unknown]
  - Palpitations [Unknown]
  - Cold sweat [Unknown]
  - Gait disturbance [Recovering/Resolving]
  - Restlessness [Unknown]
  - Pallor [Unknown]
  - Back pain [Recovered/Resolved]
  - Pain in extremity [Recovering/Resolving]
  - Dyspnoea [Unknown]
  - Angina unstable [Recovering/Resolving]
  - Chest pain [Recovering/Resolving]
  - Hyperhidrosis [Recovering/Resolving]
  - Musculoskeletal pain [Unknown]

NARRATIVE: CASE EVENT DATE: 201806
